FAERS Safety Report 7263475-9 (Version None)
Quarter: 2011Q1

REPORT INFORMATION
  Report Type: 
  Country: None (occurrence: None)
  Receive Date: 20110130
  Receipt Date: 20101203
  Transmission Date: 20110831
  Serious: No
  Sender: FDA-Public Use
  Company Number: US-ABBOTT-10P-163-0689343-00

PATIENT
  Sex: Male
  Weight: 72.64 kg

DRUGS (5)
  1. PREDNISONE [Concomitant]
     Indication: COLITIS
  2. HUMIRA [Suspect]
     Indication: PSORIATIC ARTHROPATHY
  3. HUMIRA [Suspect]
     Indication: PSORIASIS
     Dates: start: 20081201
  4. ASACOL [Concomitant]
     Indication: PRODUCT USED FOR UNKNOWN INDICATION
  5. HUMIRA [Suspect]
     Indication: COLITIS ULCERATIVE

REACTIONS (3)
  - INJECTION SITE HAEMATOMA [None]
  - COLITIS [None]
  - DEVICE MALFUNCTION [None]
